FAERS Safety Report 4479883-5 (Version None)
Quarter: 2004Q3

REPORT INFORMATION
  Report Type: 
  Country: None (occurrence: None)
  Receive Date: 20040923
  Receipt Date: 20040824
  Transmission Date: 20050211
  Serious: Yes (Other)
  Sender: FDA-Public Use
  Company Number: USA040465335

PATIENT
  Age: 82 Year
  Sex: Female
  Weight: 63 kg

DRUGS (8)
  1. FORTEO [Suspect]
     Indication: OSTEOPOROSIS
     Dosage: 20 UG DAY
     Dates: start: 20040105
  2. CALCIUM [Concomitant]
  3. HYDROCHLOROTHIAZIDE [Concomitant]
  4. ESTER-C (CALCIUM ASCORBATE) [Concomitant]
  5. THERAGRAN-M [Concomitant]
  6. VITAMIN E [Concomitant]
  7. DRISDOL [Concomitant]
  8. POTASSIUM [Concomitant]

REACTIONS (14)
  - ASTHENIA [None]
  - BLOOD PRESSURE SYSTOLIC INCREASED [None]
  - CONSTIPATION [None]
  - DIFFICULTY IN WALKING [None]
  - DIZZINESS [None]
  - INJECTION SITE HAEMORRHAGE [None]
  - MUSCULAR WEAKNESS [None]
  - NAUSEA [None]
  - PAIN IN EXTREMITY [None]
  - RASH PAPULAR [None]
  - SENSATION OF HEAVINESS [None]
  - SYNCOPE [None]
  - TOOTH INJURY [None]
  - TOOTH REPAIR [None]
